FAERS Safety Report 6933655-8 (Version None)
Quarter: 2010Q3

REPORT INFORMATION
  Report Type: 
  Country: None (occurrence: None)
  Receive Date: 20100817
  Receipt Date: 20100803
  Transmission Date: 20110219
  Serious: Yes (Life-Threatening)
  Sender: FDA-Public Use
  Company Number: CV20100419

PATIENT
  Age: 54 Year
  Sex: Female

DRUGS (3)
  1. PROPOFOL [Suspect]
     Indication: INDUCTION OF ANAESTHESIA
     Dosage: 150 MG, INTRAVENOUS BOLUS
  2. REMIFENTANIL (MANFACTURER UNKNOWN) (REMIFENTANIL) (REMIFENTANIL) [Suspect]
     Indication: INDUCTION AND MAINTENANCE OF ANAESTHESIA
  3. CLOMIPRAMINE (CLOMIPRAMINE) (CLOMIPRAMINE) [Concomitant]

REACTIONS (1)
  - TRISMUS [None]
